FAERS Safety Report 13115856 (Version 1)
Quarter: 2017Q1

REPORT INFORMATION
  Report Type: Spontaneous
  Country: US (occurrence: US)
  Receive Date: 20170115
  Receipt Date: 20170115
  Transmission Date: 20170428
  Serious: Yes (Other)
  Sender: FDA-Public Use
  Company Number: US-BAUSCH-BL-2017-000379

PATIENT
  Sex: Female

DRUGS (1)
  1. NIFEDEPINE [Suspect]
     Active Substance: NIFEDIPINE
     Indication: PREMATURE LABOUR
     Route: 065

REACTIONS (3)
  - Off label use [Unknown]
  - Foetal death [Not Recovered/Not Resolved]
  - Exposure during pregnancy [Unknown]
